FAERS Safety Report 7464047-3 (Version None)
Quarter: 2011Q2

REPORT INFORMATION
  Report Type: 
  Country: None (occurrence: None)
  Receive Date: 20110506
  Receipt Date: 20110426
  Transmission Date: 20111010
  Serious: Yes (Other)
  Sender: FDA-Public Use
  Company Number: US-BAYER-2011-035844

PATIENT
  Sex: Male

DRUGS (1)
  1. AVELOX [Suspect]
     Indication: RESPIRATORY TRACT INFECTION
     Dosage: 400 MG, QD
     Route: 048

REACTIONS (4)
  - SUICIDAL IDEATION [None]
  - TINNITUS [None]
  - RESTLESSNESS [None]
  - INSOMNIA [None]
